FAERS Safety Report 5115178-4 (Version None)
Quarter: 2006Q3

REPORT INFORMATION
  Report Type: 
  Country: None (occurrence: None)
  Receive Date: 20060922
  Receipt Date: 20060912
  Transmission Date: 20061208
  Serious: Yes (Hospitalization, Other)
  Sender: FDA-Public Use
  Company Number: 2006072147

PATIENT
  Age: 36 Year
  Sex: Female
  Weight: 53.5 kg

DRUGS (7)
  1. XANAX [Suspect]
     Indication: DRUG USE FOR UNKNOWN INDICATION
  2. REBIF [Suspect]
     Indication: MULTIPLE SCLEROSIS
     Dosage: (44 MCG, 3 IN 1 WK, SUBCUTANEOUS
     Route: 058
     Dates: start: 20020601, end: 20050701
  3. TOPAMAX [Suspect]
     Indication: DRUG USE FOR UNKNOWN INDICATION
     Dosage: (100 MG, 2 IN 1 D), ORAL
     Route: 048
     Dates: start: 20021101, end: 20050701
  4. CELEXA [Suspect]
     Indication: DRUG USE FOR UNKNOWN INDICATION
     Dosage: 30 MG (1 IN 1 D), ORAL
     Route: 048
  5. ZYPREXA [Suspect]
     Indication: DRUG USE FOR UNKNOWN INDICATION
  6. BACLOFEN [Concomitant]
  7. WELLBUTRIN [Concomitant]

REACTIONS (8)
  - ACUTE PSYCHOSIS [None]
  - HALLUCINATION, AUDITORY [None]
  - LOSS OF CONSCIOUSNESS [None]
  - MAJOR DEPRESSION [None]
  - MULTIPLE DRUG OVERDOSE [None]
  - MULTIPLE SCLEROSIS [None]
  - SOMNOLENCE [None]
  - WEIGHT INCREASED [None]
